FAERS Safety Report 22112691 (Version 2)
Quarter: 2023Q1

REPORT INFORMATION
  Report Type: Report from Study
  Country: US (occurrence: US)
  Receive Date: 20230319
  Receipt Date: 20230324
  Transmission Date: 20230418
  Serious: Yes (Other)
  Sender: FDA-Public Use
  Company Number: US-ABBVIE-4301313

PATIENT
  Sex: Female

DRUGS (1)
  1. SKYRIZI [Suspect]
     Active Substance: RISANKIZUMAB-RZAA
     Indication: Psoriasis
     Route: 058
     Dates: start: 20221128

REACTIONS (5)
  - Medical device implantation [Unknown]
  - Thermal burn [Recovering/Resolving]
  - Nasopharyngitis [Recovering/Resolving]
  - Medical device site joint pain [Unknown]
  - Wound infection staphylococcal [Recovering/Resolving]
